FAERS Safety Report 10886412 (Version 1)
Quarter: 2015Q1

REPORT INFORMATION
  Report Type: Spontaneous
  Country: US (occurrence: None)
  Receive Date: 20150227
  Receipt Date: 20150227
  Transmission Date: 20150721
  Serious: Yes (Other)
  Sender: FDA-Public Use
  Company Number: 2015020050

PATIENT
  Sex: Female

DRUGS (7)
  1. FELBATOL [Suspect]
     Active Substance: FELBAMATE
     Indication: EPILEPSY
     Dosage: 3600 MG (1200 MG, 3 IN 1 D)
     Route: 048
     Dates: start: 2008
  2. ONFI [Concomitant]
     Active Substance: CLOBAZAM
  3. AMBIEN [Concomitant]
     Active Substance: ZOLPIDEM TARTRATE
  4. ARTHROTEC (DICLOFENAC SODIUM, MISOPROSTOL) [Concomitant]
  5. SYNTHROID [Concomitant]
     Active Substance: LEVOTHYROXINE SODIUM
  6. DEPAKOTE [Suspect]
     Active Substance: DIVALPROEX SODIUM
     Indication: EPILEPSY
     Dosage: 500 MG (250 MG, 2 IN 1 D)
     Route: 048
     Dates: start: 2010, end: 201412
  7. TOPAMAX [Concomitant]
     Active Substance: TOPIRAMATE

REACTIONS (10)
  - Dizziness [None]
  - Headache [None]
  - Diplopia [None]
  - Vitamin D deficiency [None]
  - Generalised tonic-clonic seizure [None]
  - Amnesia [None]
  - Confusional state [None]
  - Anaemia [None]
  - Petit mal epilepsy [None]
  - Contusion [None]
